FAERS Safety Report 8951223 (Version 1)
Quarter: 2012Q4

REPORT INFORMATION
  Report Type: 
  Country: US (occurrence: US)
  Receive Date: 20121207
  Receipt Date: 20121207
  Transmission Date: 20130627
  Serious: Yes (Other)
  Sender: FDA-Public Use
  Company Number: US-NOVOPROD-365575

PATIENT
  Sex: Female

DRUGS (2)
  1. LEVEMIR FLEXPEN [Suspect]
     Indication: DIABETES MELLITUS
     Route: 058
  2. HUMALOG [Concomitant]
     Indication: DIABETES MELLITUS

REACTIONS (1)
  - Sepsis [Unknown]
